FAERS Safety Report 5306522-3 (Version None)
Quarter: 2007Q2

REPORT INFORMATION
  Report Type: 
  Country: None (occurrence: None)
  Receive Date: 20070419
  Receipt Date: 20070406
  Transmission Date: 20071010
  Serious: No
  Sender: FDA-Public Use
  Company Number: 2007AL001242

PATIENT
  Age: 61 Year
  Sex: Male

DRUGS (7)
  1. PHENYTOIN [Suspect]
     Indication: EPILEPSY
     Dosage: 500 MG; QD
  2. PHENOBARBITAL TAB [Concomitant]
  3. ASPIRIN [Concomitant]
  4. FOSINOPRIL SODIUM [Concomitant]
  5. ATORVASTATIN CALCIUM [Concomitant]
  6. EZETIMIBE [Concomitant]
  7. NICOTINIC ACID [Concomitant]

REACTIONS (4)
  - ACUTE CORONARY SYNDROME [None]
  - LOW DENSITY LIPOPROTEIN INCREASED [None]
  - NO THERAPEUTIC RESPONSE [None]
  - TYPE IIA HYPERLIPIDAEMIA [None]
